FAERS Safety Report 8053808-8 (Version None)
Quarter: 2012Q1

REPORT INFORMATION
  Report Type: 
  Country: None (occurrence: None)
  Receive Date: 20120118
  Receipt Date: 20120116
  Transmission Date: 20120608
  Serious: Yes (Life-Threatening, Other)
  Sender: FDA-Public Use
  Company Number: US-PFIZER INC-2012012949

PATIENT
  Age: 49 Year
  Sex: Male

DRUGS (3)
  1. CLONAZEPAM [Suspect]
     Dosage: 60 MG, UNK
  2. TRAMADOL HCL [Suspect]
     Dosage: 500 MG, UNK
  3. AMLODIPINE BESYLATE [Suspect]
     Dosage: 600 MG, UNK

REACTIONS (5)
  - RENAL FAILURE ACUTE [None]
  - INTENTIONAL OVERDOSE [None]
  - HYPOTENSION [None]
  - NON-CARDIOGENIC PULMONARY OEDEMA [None]
  - SUICIDE ATTEMPT [None]
